FAERS Safety Report 10061050 (Version 1)
Quarter: 2014Q2

REPORT INFORMATION
  Report Type: Spontaneous
  Country: NL (occurrence: NL)
  Receive Date: 20140405
  Receipt Date: 20140405
  Transmission Date: 20141212
  Serious: Yes (Death)
  Sender: FDA-Public Use
  Company Number: NL-IPSEN BIOPHARMACEUTICALS, INC.-2014-1635

PATIENT
  Age: 41 Year
  Sex: Female

DRUGS (1)
  1. SOMATULINE AUTOSOLUTION 90MG [Suspect]
     Indication: GROWTH HORMONE-PRODUCING PITUITARY TUMOUR
     Dosage: 90 MG
     Route: 058
     Dates: start: 20121129, end: 20131205

REACTIONS (1)
  - Death [Fatal]
